FAERS Safety Report 18602386 (Version 4)
Quarter: 2025Q2

REPORT INFORMATION
  Report Type: Spontaneous
  Country: FR (occurrence: FR)
  Receive Date: 20201210
  Receipt Date: 20250627
  Transmission Date: 20250717
  Serious: Yes (Hospitalization, Other)
  Sender: TAKEDA
  Company Number: None

PATIENT
  Age: 69 Year
  Sex: Female
  Weight: 64.5 kg

DRUGS (25)
  1. LANSOPRAZOLE [Suspect]
     Active Substance: LANSOPRAZOLE
     Indication: Product used for unknown indication
     Dosage: 4 DOSAGE FORM, QD DOSE DESCRIPTION : 4 DF, QD
     Dates: start: 20200405, end: 20200406
  2. PREDNISONE [Suspect]
     Active Substance: PREDNISONE
     Indication: Renal transplant
     Dosage: 7.5 MILLIGRAM, QD ~DOSE DESCRIPTION : 7.5 MG, QD (COMPRESSED)
  3. CHOLECALCIFEROL [Suspect]
     Active Substance: CHOLECALCIFEROL
     Indication: Vitamin supplementation
     Dosage: 1 DOSAGE FORM, MONTHLY UNIT DOSE : 1DOSE DESCRIPTION : 1 UNK, QM
     Dates: end: 20200513
  4. FOLIC ACID [Suspect]
     Active Substance: FOLIC ACID
     Indication: Vitamin supplementation
     Dosage: 5 MILLIGRAM, QD DOSE DESCRIPTION : 5 MG, QD
     Dates: start: 20200218, end: 20200430
  5. ATORVASTATIN CALCIUM [Suspect]
     Active Substance: ATORVASTATIN CALCIUM
     Indication: Prophylaxis
     Dosage: 20 MILLIGRAM, QD
     Dates: end: 20200519
  6. AZITHROMYCIN [Suspect]
     Active Substance: AZITHROMYCIN
     Indication: Coronavirus infection
     Dosage: 250 MILLIGRAM, QD DOSE DESCRIPTION : 250 MG, QD
     Dates: start: 20200411, end: 20200423
  7. AZITHROMYCIN [Suspect]
     Active Substance: AZITHROMYCIN
     Dosage: 200 MILLIGRAM, QD DOSE DESCRIPTION : 200 MG, QD
     Dates: start: 202004, end: 20200430
  8. ATENOLOL [Suspect]
     Active Substance: ATENOLOL
     Indication: Hypertension
     Dosage: 50 MILLIGRAM, QD DOSE DESCRIPTION : 50 MG, QD
     Dates: end: 20200709
  9. NICARDIPINE [Suspect]
     Active Substance: NICARDIPINE
     Indication: Hypertension
     Dosage: 100 MILLIGRAM, QD ~DOSE DESCRIPTION : 100 MG, QD
  10. ALLOPURINOL [Suspect]
     Active Substance: ALLOPURINOL
     Indication: Gout
     Dosage: 300 MILLIGRAM, QD ~DOSE DESCRIPTION : 300 MG, QD
     Dates: end: 20200518
  11. SPIRAMYCIN [Suspect]
     Active Substance: SPIRAMYCIN
     Indication: Lung disorder
     Dosage: 1 DOSAGE FORM, Q12H
     Dates: start: 20200405, end: 20200406
  12. BACTRIM [Suspect]
     Active Substance: SULFAMETHOXAZOLE\TRIMETHOPRIM
     Indication: Lung disorder
     Dosage: 3 DOSAGE FORM, BID DOSE DESCRIPTION : 3 DF, BID
     Dates: start: 20200406, end: 20200407
  13. CEFEPIME HYDROCHLORIDE [Suspect]
     Active Substance: CEFEPIME HYDROCHLORIDE
     Indication: Lung disorder
     Dosage: 1 GRAM, QD ~DOSE DESCRIPTION : 1 G, QD
     Dates: start: 20200405, end: 20200406
  14. CALCIPARINE [Suspect]
     Active Substance: HEPARIN CALCIUM
     Indication: Vascular disorder prophylaxis
     Dosage: 1000 INTERNATIONAL UNIT, QD
     Dates: start: 20200405, end: 20200406
  15. PLAQUENIL [Suspect]
     Active Substance: HYDROXYCHLOROQUINE SULFATE
     Indication: Coronavirus infection
     Dosage: 400 MILLIGRAM, QD ~DOSE DESCRIPTION : 400 MG, QD
     Dates: start: 20200411, end: 20200423
  16. FLECAINIDE [Concomitant]
     Active Substance: FLECAINIDE
     Indication: Product used for unknown indication
     Dosage: 100 MILLIGRAM, QD, (BREAKABLE TABLET)
  17. LANTUS [Concomitant]
     Active Substance: INSULIN GLARGINE
     Indication: Type 2 diabetes mellitus
  18. NICARDIPINE HYDROCHLORIDE [Concomitant]
     Active Substance: NICARDIPINE HYDROCHLORIDE
     Indication: Hypertension
     Dosage: 100 MILLIGRAM, QD ~DOSE DESCRIPTION : 100 MG, QD
  19. ARANESP [Concomitant]
     Active Substance: DARBEPOETIN ALFA
     Indication: Anaemia
     Dosage: 40 MICROGRAM, 1/WEEK DOSE DESCRIPTION : 40 UG, QW
     Dates: start: 202004, end: 20200518
  20. PREDNISONE [Concomitant]
     Active Substance: PREDNISONE
     Indication: Renal transplant
     Dosage: 7.5 MILLIGRAM, QD DOSE DESCRIPTION : 7.5 MG, QD
  21. FUROSEMIDE [Concomitant]
     Active Substance: FUROSEMIDE
     Indication: Hypertension
     Dosage: 120 MILLIGRAM, QD DOSE DESCRIPTION : 120 MG, QD
  22. NOVORAPID [Concomitant]
     Active Substance: INSULIN ASPART
     Indication: Type 2 diabetes mellitus
     Dosage: 1 DOSAGE FORM, QD ~DOSE DESCRIPTION : 1 DF, QD
  23. TACROLIMUS [Concomitant]
     Active Substance: TACROLIMUS
     Indication: Renal transplant
     Dosage: 1 DOSAGE FORM, QD
  24. TACROLIMUS [Concomitant]
     Active Substance: TACROLIMUS
  25. ATORVASTATIN [Concomitant]
     Active Substance: ATORVASTATIN
     Indication: Product used for unknown indication

REACTIONS (4)
  - Cholestasis [Recovered/Resolved]
  - Hepatic cytolysis [Recovered/Resolved]
  - Rash pustular [Recovered/Resolved]
  - Off label use [Unknown]

NARRATIVE: CASE EVENT DATE: 20200411
